FAERS Safety Report 11339616 (Version 2)
Quarter: 2015Q4

REPORT INFORMATION
  Report Type: Spontaneous
  Country: JP (occurrence: JP)
  Receive Date: 20150805
  Receipt Date: 20151221
  Transmission Date: 20160304
  Serious: Yes (Hospitalization)
  Sender: FDA-Public Use
  Company Number: JP-PFIZER INC-2014316966

PATIENT
  Age: 55 Year
  Sex: Female

DRUGS (1)
  1. XALKORI [Suspect]
     Active Substance: CRIZOTINIB
     Indication: LUNG NEOPLASM MALIGNANT
     Dosage: 500 MG, DAILY
     Route: 048
     Dates: start: 20141105, end: 20150715

REACTIONS (2)
  - Visual impairment [Recovering/Resolving]
  - Renal abscess [Recovered/Resolved]

NARRATIVE: CASE EVENT DATE: 20141107
